FAERS Safety Report 14151054 (Version 2)
Quarter: 2017Q4

REPORT INFORMATION
  Report Type: Report from Study
  Country: None (occurrence: CA)
  Receive Date: 20171102
  Receipt Date: 20171208
  Transmission Date: 20180321
  Serious: Yes (Other)
  Sender: FDA-Public Use
  Company Number: CA-ABBVIE-17K-028-2121443-00

PATIENT
  Age: 60 Year
  Sex: Female

DRUGS (3)
  1. METHOTREXATE. [Suspect]
     Active Substance: METHOTREXATE
     Indication: PRODUCT USED FOR UNKNOWN INDICATION
     Route: 065
     Dates: end: 201709
  2. HUMIRA [Suspect]
     Active Substance: ADALIMUMAB
     Indication: RHEUMATOID ARTHRITIS
     Route: 058
     Dates: start: 20170321, end: 201709
  3. PREDNISONE. [Concomitant]
     Active Substance: PREDNISONE
     Indication: ARTHRITIS
     Route: 048
     Dates: start: 20171025

REACTIONS (15)
  - Nausea [Recovering/Resolving]
  - Acne [Not Recovered/Not Resolved]
  - Vomiting [Recovered/Resolved]
  - Pyrexia [Recovering/Resolving]
  - Vomiting [Recovering/Resolving]
  - Haematocrit decreased [Unknown]
  - Asthenia [Not Recovered/Not Resolved]
  - Dyspepsia [Not Recovered/Not Resolved]
  - Diarrhoea [Recovering/Resolving]
  - Cough [Not Recovered/Not Resolved]
  - Gastrooesophageal reflux disease [Recovered/Resolved]
  - Rash [Not Recovered/Not Resolved]
  - Pulmonary oedema [Unknown]
  - Hypophagia [Not Recovered/Not Resolved]
  - Nausea [Recovering/Resolving]

NARRATIVE: CASE EVENT DATE: 2017
